FAERS Safety Report 19372605 (Version 1)
Quarter: 2021Q2

REPORT INFORMATION
  Report Type: Spontaneous
  Country: US (occurrence: US)
  Receive Date: 20210603
  Receipt Date: 20210603
  Transmission Date: 20210717
  Serious: Yes (Other)
  Sender: FDA-Public Use
  Company Number: US-AMERICAN REGENT INC-2021001398

PATIENT
  Age: 30 Year
  Sex: Female
  Weight: 67 kg

DRUGS (6)
  1. LIDOCAINE HCL INJECTION, USP (0517?9402?01) [Suspect]
     Active Substance: LIDOCAINE HYDROCHLORIDE
     Indication: EPIDURAL ANALGESIA
     Dosage: 5 MILLILITER, SINGLE
     Route: 008
  2. FENTANYL. [Suspect]
     Active Substance: FENTANYL
     Indication: EPIDURAL ANAESTHESIA
     Dosage: 20 MICROGRAM, SINGLE
     Route: 037
  3. FENTANYL. [Suspect]
     Active Substance: FENTANYL
     Dosage: PCEA INFUSION AT A BASAL RATE OF 6 ML/H WITH BOLUS DOSE OF 3 ML (WITH 20 MIN LOCKOUT)
     Route: 008
  4. ROPIVACAINE. [Suspect]
     Active Substance: ROPIVACAINE HYDROCHLORIDE
     Dosage: PCEA INFUSION AT A BASAL RATE OF 6 ML/H WITH BOLUS DOSE OF 3 ML (WITH 20 MIN LOCKOUT)
     Route: 008
  5. LIDOCAINE HCL AND EPINEPHRINE [Suspect]
     Active Substance: EPINEPHRINE\LIDOCAINE HYDROCHLORIDE
     Indication: EPIDURAL TEST DOSE
     Dosage: TEST DOSE, 3 MILLILITER LIDOCAINE 1.5% WITH EPINEPHRINE 1:200,000
     Route: 008
  6. ROPIVACAINE. [Suspect]
     Active Substance: ROPIVACAINE HYDROCHLORIDE
     Indication: EPIDURAL ANAESTHESIA
     Dosage: 7 MILLILITER BOLUS, SINGLE
     Route: 008

REACTIONS (3)
  - Horner^s syndrome [Recovered/Resolved]
  - Neuromuscular blockade [Recovered/Resolved]
  - Maternal exposure during pregnancy [Recovered/Resolved]
